FAERS Safety Report 9158855 (Version 3)
Quarter: 2013Q1

REPORT INFORMATION
  Report Type: Spontaneous
  Country: DE (occurrence: DE)
  Receive Date: 20130313
  Receipt Date: 20130326
  Transmission Date: 20140127
  Serious: Yes (Hospitalization)
  Sender: FDA-Public Use
  Company Number: DE-AMGEN-DEUSP2013015776

PATIENT
  Age: 71 Year
  Sex: Female

DRUGS (21)
  1. PEGFILGRASTIM [Suspect]
     Indication: B-CELL LYMPHOMA
     Dosage: 6 MG, 1X
     Route: 058
     Dates: start: 20121223
  2. RITUXIMAB [Suspect]
     Indication: B-CELL LYMPHOMA
     Dosage: 650 MG, 1X
     Route: 042
     Dates: start: 20121214
  3. CYCLOPHOSPHAMIDE [Suspect]
     Indication: B-CELL LYMPHOMA
     Dosage: 1300 MG, 1X
     Route: 042
     Dates: start: 20121219
  4. DOXORUBICIN [Suspect]
     Indication: B-CELL LYMPHOMA
     Dosage: 80 MG, 1X
     Route: 042
     Dates: start: 20121219
  5. VINCRISTINE [Suspect]
     Indication: B-CELL LYMPHOMA
     Dosage: 3.42 MG, 1X FOR 17 DAYS
     Route: 042
     Dates: start: 20121219, end: 20130104
  6. PREDNISOLONE [Suspect]
     Indication: B-CELL LYMPHOMA
     Dosage: 100 MG, 1X
     Route: 048
     Dates: start: 20121210
  7. TRIMETHOPRIM SULFAMETHOXAZOLE [Concomitant]
     Indication: PROPHYLAXIS
     Dosage: 960 MG, 2 TIMES A DAY
     Route: 048
     Dates: start: 20121227
  8. ALLOPURINOL [Concomitant]
     Indication: PROPHYLAXIS
     Dosage: 300 MG, 0.5 TIMES A DAY
     Route: 048
     Dates: start: 20121211
  9. RAMIPRIL [Concomitant]
     Indication: BLOOD PRESSURE
     Dosage: 5 MG, 2 TIMES A DAY
     Route: 048
     Dates: start: 20121207
  10. BISOPROLOL HEMIFUMARATE [Concomitant]
     Indication: BLOOD PRESSURE
     Dosage: 5 MG, 2 TIMES A DAY
     Route: 048
  11. AMPHOTERICIN B [Concomitant]
     Indication: ANTIFUNGAL PROPHYLAXIS
     Dosage: 100 MG, 4 TIMES A DAY
     Route: 048
     Dates: start: 201212
  12. ZOPICLONE [Concomitant]
     Indication: INSOMNIA
     Dosage: 7.5 MG, ON DEMAND
     Route: 048
     Dates: start: 20121216
  13. AMLODIPINE [Concomitant]
     Indication: BLOOD PRESSURE
     Dosage: 5 MG, 1 TIME A DAY
     Route: 048
     Dates: start: 20130131
  14. KALIUMCHLORIDE [Concomitant]
     Indication: HYPOKALAEMIA
     Dosage: 1200 MG, 3 TIMES A DAY
     Route: 048
     Dates: start: 20121214
  15. CIPROFLOXACIN [Concomitant]
     Indication: PROPHYLAXIS
     Dosage: 500 MG, 2 TIMES A DAY
     Route: 048
     Dates: start: 20121228
  16. ACICLOVIR [Concomitant]
     Indication: PROPHYLAXIS
     Dosage: 400 MG, 4 TIMES A DAY
     Route: 048
     Dates: start: 20121228
  17. PREGABALIN [Concomitant]
     Indication: NEUROPATHY PERIPHERAL
     Dosage: 75 MG, 2 CAPSULES ONE TIME A DAY
     Route: 048
     Dates: start: 20130131
  18. HYDROCHLOROTHIAZIDE [Concomitant]
     Indication: BLOOD PRESSURE
     Dosage: 12.5 MG, 1 TIME A DAY
     Route: 048
     Dates: start: 20130131
  19. MACROGOL W/POTASSIUM CHLORIDE/SODIUM BICARBON [Concomitant]
     Indication: CONSTIPATION
     Dosage: UNK UNK, 2 TIMES A DAY
     Route: 048
     Dates: start: 20130102
  20. METOCHLOPRAMIDE [Concomitant]
     Indication: NAUSEA
     Dosage: 20 GTT DROP(S), 3 TIMES A DAY
     Route: 048
     Dates: start: 20121225
  21. HUMINSULIN [Concomitant]
     Indication: DIABETES MELLITUS
     Dosage: 30/70 IU, 12-0-10
     Route: 058
     Dates: start: 20121206

REACTIONS (1)
  - Circulatory collapse [Recovered/Resolved]
